FAERS Safety Report 11154505 (Version 1)
Quarter: 2015Q2

REPORT INFORMATION
  Report Type: Spontaneous
  Country: US (occurrence: US)
  Receive Date: 20150602
  Receipt Date: 20150602
  Transmission Date: 20150821
  Serious: No
  Sender: FDA-Public Use
  Company Number: US-NOVEN PHARMACEUTICALS, INC.-15US013243

PATIENT
  Age: 9 Year
  Sex: Female

DRUGS (5)
  1. CRILL OIL [Concomitant]
     Indication: SUPPLEMENTATION THERAPY
  2. MELATONIN [Concomitant]
     Active Substance: MELATONIN
     Indication: SLEEP DISORDER
  3. VITAMAN [Concomitant]
     Active Substance: MINERALS\VITAMINS
     Indication: AFFECTIVE DISORDER
  4. VITAMIN D                          /00107901/ [Concomitant]
     Active Substance: ERGOCALCIFEROL
     Indication: SUPPLEMENTATION THERAPY
  5. DAYTRANA [Suspect]
     Active Substance: METHYLPHENIDATE
     Indication: ATTENTION DEFICIT/HYPERACTIVITY DISORDER
     Dosage: 15 MG, DAILY
     Route: 062
     Dates: start: 20141101, end: 20141231

REACTIONS (3)
  - Urticaria [Recovered/Resolved]
  - Product quality issue [Not Recovered/Not Resolved]
  - Application site urticaria [Recovered/Resolved]

NARRATIVE: CASE EVENT DATE: 20141224
